FAERS Safety Report 23624688 (Version 1)
Quarter: 2024Q1

REPORT INFORMATION
  Report Type: Spontaneous
  Country: US (occurrence: US)
  Receive Date: 20240313
  Receipt Date: 20240313
  Transmission Date: 20240410
  Serious: No
  Sender: FDA-Public Use
  Company Number: US-CHIESI-2024CHF00834

PATIENT
  Age: 48 Year
  Sex: Female

DRUGS (1)
  1. LAMZEDE [Suspect]
     Active Substance: VELMANASE ALFA-TYCV
     Indication: Alpha-mannosidosis
     Dosage: 44 MILLIGRAM, QW
     Route: 042
     Dates: start: 20240130

REACTIONS (3)
  - Incorrect dose administered [Unknown]
  - Product administration interrupted [Unknown]
  - Product complaint [Not Recovered/Not Resolved]

NARRATIVE: CASE EVENT DATE: 20240214
